FAERS Safety Report 25777719 (Version 2)
Quarter: 2025Q3

REPORT INFORMATION
  Report Type: Spontaneous
  Country: SG (occurrence: SG)
  Receive Date: 20250909
  Receipt Date: 20250923
  Transmission Date: 20251021
  Serious: Yes (Other)
  Sender: TEVA
  Company Number: SG-TEVA-VS-3368964

PATIENT
  Age: 52 Year
  Sex: Male

DRUGS (4)
  1. ATORVASTATIN [Interacting]
     Active Substance: ATORVASTATIN
     Indication: Lipid management
     Dosage: Q.P.M.
     Route: 065
  2. ATORVASTATIN [Interacting]
     Active Substance: ATORVASTATIN
     Indication: Lipid management
     Dosage: Q.P.M.
     Route: 065
  3. EZETIMIBE [Concomitant]
     Active Substance: EZETIMIBE
     Indication: Lipid management
     Dosage: Q.P.M
     Route: 065
  4. TICAGRELOR [Interacting]
     Active Substance: TICAGRELOR
     Indication: Antiplatelet therapy
     Route: 065

REACTIONS (4)
  - Myopathy [Unknown]
  - Drug interaction [Unknown]
  - Drug-genetic interaction [Unknown]
  - Drug level increased [Unknown]
